FAERS Safety Report 5107214-6 (Version None)
Quarter: 2006Q3

REPORT INFORMATION
  Report Type: 
  Country: None (occurrence: None)
  Receive Date: 20060731
  Receipt Date: 20060407
  Transmission Date: 20061208
  Serious: No
  Sender: FDA-Public Use
  Company Number: 2006PV011771

PATIENT
  Age: 71 Year
  Sex: Male
  Weight: 101.1521 kg

DRUGS (11)
  1. BYETTA [Suspect]
     Indication: DIABETES MELLITUS NON-INSULIN-DEPENDENT
     Dosage: SEE IMAGE
     Route: 058
     Dates: start: 20060301, end: 20060301
  2. BYETTA [Suspect]
     Indication: DIABETES MELLITUS NON-INSULIN-DEPENDENT
     Dosage: SEE IMAGE
     Route: 058
     Dates: start: 20060228, end: 20060306
  3. BYETTA [Suspect]
     Indication: DIABETES MELLITUS NON-INSULIN-DEPENDENT
     Dosage: SEE IMAGE
     Route: 058
     Dates: start: 19660321, end: 20060402
  4. BYETTA [Suspect]
     Indication: DIABETES MELLITUS NON-INSULIN-DEPENDENT
     Dosage: SEE IMAGE
     Route: 058
     Dates: start: 20060403
  5. ACTOS [Concomitant]
  6. ACTOS [Concomitant]
  7. METFORMIN HCL [Concomitant]
  8. GLIPIZIDE [Concomitant]
  9. GLUCOTROL [Concomitant]
  10. ZYRTEC [Concomitant]
  11. CLARINEX [Concomitant]

REACTIONS (7)
  - EAR PAIN [None]
  - GASTROINTESTINAL PAIN [None]
  - NAUSEA [None]
  - PAIN [None]
  - PHARYNGOLARYNGEAL PAIN [None]
  - RHINORRHOEA [None]
  - WEIGHT DECREASED [None]
